FAERS Safety Report 9098310 (Version 1)
Quarter: 2013Q1

REPORT INFORMATION
  Report Type: Spontaneous
  Country: US (occurrence: US)
  Receive Date: 20130213
  Receipt Date: 20130213
  Transmission Date: 20140127
  Serious: Yes (Other)
  Sender: FDA-Public Use
  Company Number: CHPA2013US002699

PATIENT
  Age: 54 Year
  Sex: Female

DRUGS (3)
  1. CONTROL PLP [Suspect]
     Indication: SMOKING CESSATION THERAPY
     Dosage: 21 MG, QD
     Route: 062
     Dates: start: 20130131
  2. ALBUTEROL SULFATE [Concomitant]
     Indication: ASTHMA
     Dosage: 2.5 MG/3 ML, UNK
  3. IPRATROPIUM BROMIDE [Concomitant]
     Indication: ASTHMA
     Dosage: 0.5 MG, UNK

REACTIONS (6)
  - Asthma [Not Recovered/Not Resolved]
  - Sinusitis [Not Recovered/Not Resolved]
  - Contusion [Not Recovered/Not Resolved]
  - Overdose [Unknown]
  - Treatment noncompliance [Unknown]
  - Wrong technique in drug usage process [Unknown]
